FAERS Safety Report 24207984 (Version 2)
Quarter: 2024Q3

REPORT INFORMATION
  Report Type: Spontaneous
  Country: CZ (occurrence: None)
  Receive Date: 20240814
  Receipt Date: 20240911
  Transmission Date: 20241016
  Serious: Yes (Death, Hospitalization)
  Sender: ORION
  Company Number: CZ-Orion Corporation ORION PHARMA-TREX2024-0209

PATIENT
  Age: 71 Year
  Sex: Female

DRUGS (1)
  1. METHOTREXATE SODIUM [Suspect]
     Active Substance: METHOTREXATE SODIUM
     Indication: Rheumatoid arthritis
     Dosage: STRENGTH: 10 MG
     Dates: start: 20220621, end: 20220705

REACTIONS (6)
  - Inappropriate schedule of product administration [Fatal]
  - Overdose [Fatal]
  - Medication error [Fatal]
  - Aphthous ulcer [Fatal]
  - Skin lesion [Fatal]
  - Pancytopenia [Fatal]

NARRATIVE: CASE EVENT DATE: 20220101
